FAERS Safety Report 25497248 (Version 2)
Quarter: 2025Q3

REPORT INFORMATION
  Report Type: Report from Study
  Country: US (occurrence: US)
  Receive Date: 20250701
  Receipt Date: 20250715
  Transmission Date: 20251020
  Serious: Yes (Hospitalization)
  Sender: BIOVITRUM
  Company Number: US-BIOVITRUM-2025-US-003100

PATIENT
  Age: 69 Year
  Sex: Male

DRUGS (7)
  1. DOPTELET [Suspect]
     Active Substance: AVATROMBOPAG MALEATE
     Indication: Immune thrombocytopenia
     Route: 048
     Dates: start: 20240213
  2. DOPTELET [Suspect]
     Active Substance: AVATROMBOPAG MALEATE
     Route: 048
     Dates: start: 20240213
  3. DOPTELET [Suspect]
     Active Substance: AVATROMBOPAG MALEATE
     Route: 048
  4. DOPTELET [Suspect]
     Active Substance: AVATROMBOPAG MALEATE
     Route: 048
  5. ATENOLOL [Concomitant]
     Active Substance: ATENOLOL
     Indication: Product used for unknown indication
  6. CELEBREX [Concomitant]
     Active Substance: CELECOXIB
     Indication: Product used for unknown indication
  7. FOLIC ACID [Concomitant]
     Active Substance: FOLIC ACID
     Indication: Product used for unknown indication

REACTIONS (4)
  - Platelet count abnormal [Unknown]
  - Pain in extremity [Unknown]
  - Neck pain [Unknown]
  - Platelet count increased [Unknown]
